FAERS Safety Report 16192206 (Version 1)
Quarter: 2019Q2

REPORT INFORMATION
  Report Type: Spontaneous
  Country: US (occurrence: US)
  Receive Date: 20190412
  Receipt Date: 20190412
  Transmission Date: 20190711
  Serious: Yes (Other)
  Sender: FDA-Public Use
  Company Number: US-ASTRAZENECA-2019SE54456

PATIENT
  Age: 96 Year

DRUGS (1)
  1. TAGRISSO [Suspect]
     Active Substance: OSIMERTINIB
     Dosage: 0.5DF UNKNOWN
     Route: 048

REACTIONS (2)
  - Off label use [Unknown]
  - Bone marrow failure [Unknown]
